FAERS Safety Report 8306170-7 (Version None)
Quarter: 2012Q2

REPORT INFORMATION
  Report Type: 
  Country: None (occurrence: None)
  Receive Date: 20120423
  Receipt Date: 20120418
  Transmission Date: 20120825
  Serious: Yes (Other)
  Sender: FDA-Public Use
  Company Number: US-PFIZER INC-2012097002

PATIENT
  Sex: Female
  Weight: 113 kg

DRUGS (27)
  1. CELEXA [Concomitant]
     Dosage: 40 MG, 2X/DAY
  2. ATENOLOL [Concomitant]
     Dosage: 50 MG, 1X/DAY
  3. WELLBUTRIN [Concomitant]
     Dosage: 100 MG, 2X/DAY
  4. TRAZODONE [Concomitant]
     Dosage: 150 MG, 2X/DAY
  5. OXYCODONE [Concomitant]
     Dosage: UNK, 6X/DAY
  6. DETROL [Concomitant]
     Dosage: 5 MG, 2X/DAY
  7. ADVAIR DISKUS 100/50 [Concomitant]
     Indication: ASTHMA
     Dosage: UNK, 2X/DAY
  8. NEURONTIN [Suspect]
     Indication: DIABETES MELLITUS
  9. POTASSIUM CHLORIDE [Concomitant]
     Dosage: 40 MG, 1X/DAY
  10. IRON [Concomitant]
     Dosage: UNK
  11. NEURONTIN [Suspect]
     Indication: RHEUMATOID ARTHRITIS
     Dosage: UNK
  12. NEURONTIN [Suspect]
     Indication: OSTEOARTHRITIS
  13. PREDNISONE [Concomitant]
     Dosage: 10 MG, 1X/DAY
  14. ZANAFLEX [Concomitant]
     Dosage: 4 MG, 3X/DAY
  15. COMBIVENT [Concomitant]
     Dosage: UNK, 2X/DAY
  16. NEURONTIN [Suspect]
     Indication: LEG AMPUTATION
     Dosage: 800MG, 3 TABLETS IN MORNING, 3 IN AFTERNOON, 4 IN EVENING
  17. NEURONTIN [Suspect]
     Indication: TENDON DISORDER
  18. SULFASALAZINE [Concomitant]
     Dosage: 500 MG, 1X/DAY
  19. OMEPRAZOLE [Concomitant]
     Dosage: UNK, 2X/DAY
  20. DUONEB [Concomitant]
     Dosage: UNK
  21. NEURONTIN [Suspect]
     Indication: OSTEOPOROSIS
     Dosage: UNK
     Route: 048
     Dates: start: 19980101
  22. GLUCOPHAGE [Concomitant]
     Dosage: 500 MG, 2X/DAY
  23. DIHYDROERGOTAMINE MESILATE [Concomitant]
     Indication: MIGRAINE
     Dosage: UNK, AS NEEDED
  24. ARAVA [Concomitant]
     Indication: RHEUMATOID ARTHRITIS
     Dosage: UNK
  25. LEVOTHYROXINE [Concomitant]
     Dosage: 75 UG, 1X/DAY
  26. WARFARIN [Concomitant]
     Dosage: 5 MG, 3X/WEEK OR 4X/WEEK
  27. FOSAMAX [Concomitant]
     Dosage: UNK 2X/DAY

REACTIONS (2)
  - DEPRESSION [None]
  - BLADDER CANCER [None]
